FAERS Safety Report 12947994 (Version 1)
Quarter: 2016Q4

REPORT INFORMATION
  Report Type: Report from Study
  Country: BR (occurrence: BR)
  Receive Date: 20161116
  Receipt Date: 20161116
  Transmission Date: 20170207
  Serious: Yes (Hospitalization, Other)
  Sender: FDA-Public Use
  Company Number: PHHY2016BR156131

PATIENT
  Sex: Male
  Weight: 64 kg

DRUGS (3)
  1. FORASEQ [Suspect]
     Active Substance: BUDESONIDE\FORMOTEROL FUMARATE
     Indication: BRONCHITIS
     Dosage: 1 DF (FORMOTEROL FUMARATE 12 MCG/ BUDESONIDE 400 MCG), QD
     Route: 055
  2. FORASEQ [Suspect]
     Active Substance: BUDESONIDE\FORMOTEROL FUMARATE
     Dosage: 1 DF (FORMOTEROL FUMARATE 12 MCG/ BUDESONIDE 400 MCG), BID
     Route: 055
  3. BAMIFIX [Concomitant]
     Active Substance: BAMIFYLLINE HYDROCHLORIDE
     Indication: PRODUCT USED FOR UNKNOWN INDICATION
     Route: 065

REACTIONS (8)
  - Condition aggravated [Unknown]
  - Speech disorder [Unknown]
  - Dysphagia [Unknown]
  - Dysarthria [Unknown]
  - Cerebrovascular accident [Unknown]
  - Bronchitis [Unknown]
  - Pneumonia [Unknown]
  - Dyspnoea [Unknown]
